FAERS Safety Report 5832584-0 (Version None)
Quarter: 2008Q3

REPORT INFORMATION
  Report Type: 
  Country: None (occurrence: None)
  Receive Date: 20080804
  Receipt Date: 20080722
  Transmission Date: 20090109
  Serious: Yes (Death, Other)
  Sender: FDA-Public Use
  Company Number: PHHY2008US08982

PATIENT
  Sex: Female
  Weight: 234 kg

DRUGS (1)
  1. CLOZARIL [Suspect]
     Dosage: 100 MG

REACTIONS (9)
  - CHROMATURIA [None]
  - CONJUNCTIVAL HYPERAEMIA [None]
  - CORONARY ARTERY EMBOLISM [None]
  - HEPATIC STEATOSIS [None]
  - PULMONARY CONGESTION [None]
  - PULMONARY EMBOLISM [None]
  - RESUSCITATION [None]
  - SKIN PLAQUE [None]
  - URINE ABNORMALITY [None]
